FAERS Safety Report 8006928 (Version 5)
Quarter: 2013Q4

REPORT INFORMATION
  Report Type: Report from Study
  Country: GB (occurrence: GB)
  Receive Date: 20110623
  Receipt Date: 20131108
  Transmission Date: 20140711
  Serious: Yes (Hospitalization)
  Sender: FDA-Public Use
  Company Number: GB-PFIZER INC-2011131998

PATIENT
  Age: 70 Year
  Sex: Male

DRUGS (2)
  1. SUNITINIB MALATE [Suspect]
     Dosage: 25 MG, UNK
     Dates: start: 20110330
  2. CIPROFLOXACIN [Concomitant]
     Dosage: 250 MG, 2X/DAY
     Route: 048

REACTIONS (1)
  - Urosepsis [Recovered/Resolved]
